FAERS Safety Report 19389441 (Version 1)
Quarter: 2021Q2

REPORT INFORMATION
  Report Type: Spontaneous
  Country: AU (occurrence: AU)
  Receive Date: 20210608
  Receipt Date: 20210608
  Transmission Date: 20210717
  Serious: Yes (Other)
  Sender: FDA-Public Use
  Company Number: AU-PFIZER INC-2021640362

PATIENT
  Age: 40 Year
  Sex: Female

DRUGS (14)
  1. PREGABALIN. [Suspect]
     Active Substance: PREGABALIN
     Indication: NEURALGIA
     Dosage: UNK
  2. FENTANYL CITRATE. [Suspect]
     Active Substance: FENTANYL CITRATE
     Indication: IMMUNOCHEMOTHERAPY
  3. METHYLPREDNISOLONE. [Suspect]
     Active Substance: METHYLPREDNISOLONE
     Indication: IMMUNOCHEMOTHERAPY
     Dosage: 1 MG/KG, DAILY
     Dates: start: 2019
  4. PREGABALIN. [Suspect]
     Active Substance: PREGABALIN
     Indication: IMMUNOCHEMOTHERAPY
  5. KETOROLAC [Suspect]
     Active Substance: KETOROLAC TROMETHAMINE
     Indication: NEURALGIA
     Dosage: 10 MG, DAILY
     Dates: start: 2019, end: 2019
  6. KETOROLAC [Suspect]
     Active Substance: KETOROLAC TROMETHAMINE
     Indication: IMMUNOCHEMOTHERAPY
  7. METHADONE [Suspect]
     Active Substance: METHADONE HYDROCHLORIDE
     Indication: NEURALGIA
     Dosage: 60 MG, DAILY (TITRATED RAPIDLY)
     Dates: start: 2019
  8. METHADONE [Suspect]
     Active Substance: METHADONE HYDROCHLORIDE
     Indication: IMMUNOCHEMOTHERAPY
  9. HYDROMORPHONE [Suspect]
     Active Substance: HYDROMORPHONE
     Indication: NEURALGIA
     Dosage: 675 MG, MORPHINE/DAY
     Route: 048
     Dates: start: 2019
  10. FENTANYL CITRATE. [Suspect]
     Active Substance: FENTANYL CITRATE
     Indication: NEURALGIA
     Dosage: UNK
     Dates: start: 2019
  11. KETAMINE HCL [Suspect]
     Active Substance: KETAMINE HYDROCHLORIDE
     Indication: IMMUNOCHEMOTHERAPY
  12. METHYLPREDNISOLONE. [Suspect]
     Active Substance: METHYLPREDNISOLONE
     Indication: PYREXIA
  13. HYDROMORPHONE [Suspect]
     Active Substance: HYDROMORPHONE
     Indication: IMMUNOCHEMOTHERAPY
     Dosage: UNK
     Route: 058
     Dates: start: 2019, end: 2019
  14. KETAMINE HCL [Suspect]
     Active Substance: KETAMINE HYDROCHLORIDE
     Indication: NEURALGIA
     Dosage: UNK

REACTIONS (2)
  - Haemophagocytic lymphohistiocytosis [Not Recovered/Not Resolved]
  - Drug ineffective [Not Recovered/Not Resolved]

NARRATIVE: CASE EVENT DATE: 2019
